FAERS Safety Report 8231532-6 (Version None)
Quarter: 2012Q1

REPORT INFORMATION
  Report Type: 
  Country: None (occurrence: None)
  Receive Date: 20120323
  Receipt Date: 20120316
  Transmission Date: 20120608
  Serious: Yes (Other)
  Sender: FDA-Public Use
  Company Number: PHHY2012FR023289

PATIENT
  Age: 55 Year
  Sex: Female

DRUGS (6)
  1. DELURSAN [Concomitant]
     Indication: CHOLANGITIS
  2. IRBESARTAN [Concomitant]
  3. PROPRANOLOL [Concomitant]
     Indication: VARICES OESOPHAGEAL
  4. ZOLEDRONOC ACID [Suspect]
     Indication: OSTEOPOROSIS
     Dosage: UNK UKN, UNK
     Route: 042
     Dates: start: 20120209
  5. VITAMIN D [Concomitant]
  6. CALCIUM CARBONATE [Concomitant]

REACTIONS (3)
  - SYNOVITIS [None]
  - SOFT TISSUE DISORDER [None]
  - ARTHRALGIA [None]
